FAERS Safety Report 7708827-5 (Version None)
Quarter: 2011Q3

REPORT INFORMATION
  Report Type: 
  Country: None (occurrence: None)
  Receive Date: 20110819
  Receipt Date: 20110803
  Transmission Date: 20111222
  Serious: Yes (Life-Threatening, Hospitalization, Other)
  Sender: FDA-Public Use
  Company Number: 2011MA009069

PATIENT
  Age: 62 Year
  Sex: Male

DRUGS (2)
  1. VINORELBINE [Suspect]
     Indication: SMALL CELL LUNG CANCER STAGE UNSPECIFIED
     Dosage: 40 MG;1X;IV
     Route: 042
  2. SODIUM CHLORIDE 0.9% [Suspect]
     Indication: SMALL CELL LUNG CANCER STAGE UNSPECIFIED
     Dosage: 100 ML;1X;IV
     Route: 042

REACTIONS (1)
  - ANAPHYLACTIC REACTION [None]
